FAERS Safety Report 8547615-7 (Version None)
Quarter: 2012Q3

REPORT INFORMATION
  Report Type: 
  Country: None (occurrence: None)
  Receive Date: 20120727
  Receipt Date: 20120419
  Transmission Date: 20120928
  Serious: Yes (Other)
  Sender: FDA-Public Use
  Company Number: US-ASTRAZENECA-2012SE19932

PATIENT
  Age: 37 Year
  Sex: Female
  Weight: 68.9 kg

DRUGS (2)
  1. SEROQUEL [Suspect]
     Indication: BIPOLAR DISORDER
     Route: 048
     Dates: start: 20120316, end: 20120320
  2. LITHIUM CARBONATE [Concomitant]
     Route: 048

REACTIONS (12)
  - NAUSEA [None]
  - SCREAMING [None]
  - ANXIETY [None]
  - FATIGUE [None]
  - INCREASED APPETITE [None]
  - GAIT DISTURBANCE [None]
  - SPEECH DISORDER [None]
  - HEADACHE [None]
  - DYSARTHRIA [None]
  - VISION BLURRED [None]
  - WEIGHT INCREASED [None]
  - DYSTONIA [None]
